FAERS Safety Report 18387088 (Version 1)
Quarter: 2020Q4

REPORT INFORMATION
  Report Type: Spontaneous
  Country: US (occurrence: US)
  Receive Date: 20201015
  Receipt Date: 20201015
  Transmission Date: 20210114
  Serious: No
  Sender: FDA-Public Use
  Company Number: None

PATIENT
  Age: 79 Year
  Sex: Male
  Weight: 97.4 kg

DRUGS (8)
  1. SODIUM BICARBONATE 50MEQ INJ [Concomitant]
     Dates: start: 20201009, end: 20201009
  2. METHYLPREDNISOLONE 40MG IV [Concomitant]
     Dates: start: 20201009, end: 20201009
  3. PHENYLEPHRINE 100MG/250ML NS [Concomitant]
     Dates: start: 20201009, end: 20201011
  4. PIPERACILLIN/TACOBACTAM 2.25GM IV [Concomitant]
     Dates: start: 20201009, end: 20201009
  5. AZIITHROMYCIN 500MG/250ML IV NS [Concomitant]
     Dates: start: 20201009, end: 20201009
  6. REMDESIVIR. [Suspect]
     Active Substance: REMDESIVIR
     Indication: COVID-19
     Dosage: ?          OTHER FREQUENCY:ONCE;?
     Route: 042
     Dates: start: 20201009, end: 20201009
  7. DEXMEDETOMIDE IV 400MCG/100ML NS [Concomitant]
     Dates: start: 20201009, end: 20201010
  8. PLASMA-LYTE IV 250ML [Concomitant]
     Dates: start: 20201009, end: 20201009

REACTIONS (1)
  - Liver function test increased [None]

NARRATIVE: CASE EVENT DATE: 20201010
